FAERS Safety Report 8967655 (Version 1)
Quarter: 2012Q4

REPORT INFORMATION
  Report Type: Spontaneous
  Country: US (occurrence: None)
  Receive Date: 20121204
  Receipt Date: 20121204
  Transmission Date: 20130627
  Serious: Yes (Death, Hospitalization)
  Sender: FDA-Public Use
  Company Number: CARI20120015

PATIENT
  Age: 51 Year
  Sex: Female

DRUGS (4)
  1. CARISOPRODOL [Suspect]
     Indication: PRODUCT USED FOR UNKNOWN INDICATION
     Route: 048
  2. CLONAZEPAM [Suspect]
     Indication: PRODUCT USED FOR UNKNOWN INDICATION
     Route: 048
  3. ATIVAN (LORAZEPAM) *LORAZEPAM) [Concomitant]
  4. MELATONIN (MELATONIN) (MELATONIN) [Concomitant]

REACTIONS (18)
  - Urinary bladder rupture [None]
  - Intentional overdose [None]
  - Unresponsive to stimuli [None]
  - Pulse pressure decreased [None]
  - Aspiration [None]
  - Blood pressure increased [None]
  - Hepatomegaly [None]
  - Pulmonary oedema [None]
  - Pulmonary congestion [None]
  - Bronchopneumonia [None]
  - Mydriasis [None]
  - Depressed level of consciousness [None]
  - Coma scale abnormal [None]
  - Urinary bladder haemorrhage [None]
  - Tachypnoea [None]
  - Hyperhidrosis [None]
  - Pain [None]
  - General physical health deterioration [None]
